FAERS Safety Report 18858917 (Version 1)
Quarter: 2021Q1

REPORT INFORMATION
  Report Type: Spontaneous
  Country: US (occurrence: US)
  Receive Date: 20210206
  Receipt Date: 20210206
  Transmission Date: 20210420
  Serious: No
  Sender: FDA-Public Use
  Company Number: None

PATIENT
  Age: 54 Year
  Sex: Female
  Weight: 73.8 kg

DRUGS (11)
  1. CYMBALTA [Concomitant]
     Active Substance: DULOXETINE HYDROCHLORIDE
  2. PANTOPRAZOLE 40MG [Concomitant]
     Active Substance: PANTOPRAZOLE SODIUM
  3. LETROZOLE 2.5MG [Concomitant]
     Active Substance: LETROZOLE
  4. IBUPROFEN. [Concomitant]
     Active Substance: IBUPROFEN
  5. LEVOTHYROXINE. [Concomitant]
     Active Substance: LEVOTHYROXINE
  6. BUSPIRONE 30MG [Concomitant]
  7. NORTRIPTYLINE 50MG [Concomitant]
     Active Substance: NORTRIPTYLINE
  8. IBRANCE [Suspect]
     Active Substance: PALBOCICLIB
     Indication: BREAST CANCER
     Route: 048
     Dates: start: 20201126
  9. VITAMIN B12 1000MCG [Concomitant]
  10. ROSUVASTATIN 10MG [Concomitant]
     Active Substance: ROSUVASTATIN
  11. VITAMIN D 1.25MG [Concomitant]

REACTIONS (1)
  - Flatulence [None]

NARRATIVE: CASE EVENT DATE: 20210206
